FAERS Safety Report 17988129 (Version 2)
Quarter: 2020Q3

REPORT INFORMATION
  Report Type: Spontaneous
  Country: RU (occurrence: RU)
  Receive Date: 20200707
  Receipt Date: 20200713
  Transmission Date: 20201103
  Serious: Yes (Other)
  Sender: FDA-Public Use
  Company Number: RU-BIOGEN-2020BI00894290

PATIENT
  Age: 5 Year
  Sex: Male

DRUGS (1)
  1. SPINRAZA [Suspect]
     Active Substance: NUSINERSEN
     Indication: SPINAL MUSCULAR ATROPHY
     Route: 065
     Dates: start: 20200702

REACTIONS (11)
  - Cold sweat [Unknown]
  - Headache [Unknown]
  - Blood pressure decreased [Unknown]
  - Lung infiltration [Unknown]
  - Hypersensitivity [Unknown]
  - Chills [Unknown]
  - Altered state of consciousness [Unknown]
  - Oxygen saturation decreased [Unknown]
  - Tachycardia [Unknown]
  - Respiratory failure [Unknown]
  - Vomiting [Unknown]

NARRATIVE: CASE EVENT DATE: 20200702
